FAERS Safety Report 22120229 (Version 2)
Quarter: 2024Q1

REPORT INFORMATION
  Report Type: Report from Study
  Country: US (occurrence: US)
  Receive Date: 20230321
  Receipt Date: 20240329
  Transmission Date: 20240410
  Serious: Yes (Hospitalization, Other)
  Sender: FDA-Public Use
  Company Number: US-002147023-NVSC2023US060335

PATIENT
  Age: 76 Year
  Sex: Female
  Weight: 79.8 kg

DRUGS (8)
  1. ILARIS [Suspect]
     Active Substance: CANAKINUMAB
     Indication: Pancreatic carcinoma metastatic
     Dosage: 250 MG, QMO
     Route: 058
     Dates: start: 20230119, end: 20230217
  2. GEMCITABINE [Suspect]
     Active Substance: GEMCITABINE
     Indication: Pancreatic carcinoma metastatic
     Dosage: 155 MG (3 WEEKS ON, 1 WEEK OFF)
     Route: 042
     Dates: start: 20230119, end: 20230222
  3. CREON [Concomitant]
     Active Substance: PANCRELIPASE AMYLASE\PANCRELIPASE LIPASE\PANCRELIPASE PROTEASE
     Indication: Nutritional supplementation
     Dosage: UNK (24000-76000 UNITS) (FREQUENCY: PRN)
     Route: 048
     Dates: start: 20240104
  4. OMEPRAZOLE [Concomitant]
     Active Substance: OMEPRAZOLE
     Indication: Nausea
     Dosage: 40 MG, PRN (CAPSULE DELAYED RELEASE)
     Route: 065
     Dates: start: 20230104
  5. OMEPRAZOLE [Concomitant]
     Active Substance: OMEPRAZOLE
     Indication: Gastrooesophageal reflux disease
     Dosage: 8 MG, PRN
     Route: 065
     Dates: start: 20230104
  6. ONDANSETRON [Concomitant]
     Active Substance: ONDANSETRON
     Indication: Nausea
     Dosage: UNK
     Route: 065
     Dates: start: 20230104
  7. TRESIBA [Concomitant]
     Active Substance: INSULIN DEGLUDEC
     Indication: Product used for unknown indication
     Dosage: UNK
     Route: 065
  8. ZOSYN [Concomitant]
     Active Substance: PIPERACILLIN SODIUM\TAZOBACTAM SODIUM
     Indication: Product used for unknown indication
     Dosage: UNK
     Route: 065

REACTIONS (10)
  - Diarrhoea [Recovered/Resolved]
  - Hallucination [Unknown]
  - Hypothermia [Unknown]
  - Dumping syndrome [Recovering/Resolving]
  - Abdominal pain [Unknown]
  - Muscle spasms [Recovering/Resolving]
  - Dizziness [Unknown]
  - Chills [Unknown]
  - Blood glucose decreased [Unknown]
  - Product use in unapproved indication [Unknown]

NARRATIVE: CASE EVENT DATE: 20230301
